FAERS Safety Report 4716645-5 (Version None)
Quarter: 2005Q3

REPORT INFORMATION
  Report Type: 
  Country: None (occurrence: None)
  Receive Date: 20050714
  Receipt Date: 20050705
  Transmission Date: 20060218
  Serious: Yes (Other)
  Sender: FDA-Public Use
  Company Number: 2005079562

PATIENT
  Age: 71 Year
  Sex: Female
  Weight: 71.6683 kg

DRUGS (17)
  1. CELEBREX [Suspect]
     Indication: OSTEOARTHRITIS
     Dosage: 200 MG (200 MG, 1 IN 1 D), ORAL
     Route: 048
     Dates: start: 20020101, end: 20040101
  2. ZAROXOLYN [Concomitant]
  3. AMITRIPTYLINE HCL [Concomitant]
  4. ARICEPT [Concomitant]
  5. EFFEXOR [Concomitant]
  6. FUROSEMIDE [Concomitant]
  7. KLONOPIN [Concomitant]
  8. ALL OTHER THERAPEUTIC PRODUCTS (ALL OTHER THERAPEUTIC PRODUCTS) [Concomitant]
  9. NORVASC [Concomitant]
  10. POTASSIUM (POTASSIUM) [Concomitant]
  11. PREVACID [Concomitant]
  12. QUININE SULFATE [Concomitant]
  13. TRILEPTAL [Concomitant]
  14. LEVOTHYROXINE SODIUM [Concomitant]
  15. BELLERGAL (BELLADONNA ALKALOIDS, ERGOTAMINE TARTRATE, PHENOBARBITAL) [Concomitant]
  16. LASIX [Concomitant]
  17. EFFEXOR XR [Concomitant]

REACTIONS (4)
  - DRY SKIN [None]
  - PIGMENTATION DISORDER [None]
  - RASH [None]
  - RENAL FAILURE [None]
